FAERS Safety Report 9290477 (Version 2)
Quarter: 2014Q1

REPORT INFORMATION
  Report Type: Spontaneous
  Country: US (occurrence: US)
  Receive Date: 20130515
  Receipt Date: 20140210
  Transmission Date: 20141002
  Serious: No
  Sender: FDA-Public Use
  Company Number: US-PFIZER INC-2013147069

PATIENT
  Age: 74 Year
  Sex: Female
  Weight: 60.77 kg

DRUGS (1)
  1. LYRICA [Suspect]
     Indication: FIBROMYALGIA
     Dosage: 100 MG, 2X/DAY
     Route: 048

REACTIONS (2)
  - Pruritus generalised [Recovered/Resolved]
  - Malaise [Unknown]
